FAERS Safety Report 6652980-1 (Version None)
Quarter: 2010Q1

REPORT INFORMATION
  Report Type: 
  Country: None (occurrence: None)
  Receive Date: 20100326
  Receipt Date: 20100315
  Transmission Date: 20100710
  Serious: Yes (Hospitalization)
  Sender: FDA-Public Use
  Company Number: PHHY2010AU12377

PATIENT
  Sex: Female

DRUGS (5)
  1. CLOZARIL [Suspect]
     Dosage: 600 MG
     Route: 048
     Dates: start: 20071112
  2. NOVOMIX 30 [Suspect]
     Dosage: 140 UNITS MORNING AND 80 UNITS NIGHT
     Route: 058
  3. ATORVASTATIN CALCIUM [Concomitant]
     Dosage: 10 MG, MORNING
     Route: 048
  4. METFORMIN HYDROCHLORIDE [Concomitant]
     Dosage: 1000 MG, BID
     Route: 048
  5. VALPROATE SODIUM [Concomitant]
     Dosage: 1000 MG, BID
     Route: 048

REACTIONS (3)
  - MALAISE [None]
  - MENTAL DISORDER [None]
  - THERAPY CESSATION [None]
